FAERS Safety Report 7135492-0 (Version None)
Quarter: 2011Q1

REPORT INFORMATION
  Report Type: 
  Country: None (occurrence: None)
  Receive Date: 20101119
  Receipt Date: 20101105
  Transmission Date: 20110831
  Serious: Yes (Death, Life-Threatening)
  Sender: FDA-Public Use
  Company Number: 10-472

PATIENT
  Age: 48 Year
  Sex: Male

DRUGS (2)
  1. IBUPROFEN [Suspect]
     Dosage: ORAL
     Route: 048
     Dates: start: 19870101
  2. ACETAMINOPHEN [Suspect]

REACTIONS (11)
  - RENAL FAILURE ACUTE [None]
  - HEPATIC NECROSIS [None]
  - COLONIC OBSTRUCTION [None]
  - COMPLETED SUICIDE [None]
  - PNEUMONIA ASPIRATION [None]
  - MULTIPLE DRUG OVERDOSE INTENTIONAL [None]
  - WEIGHT DECREASED [None]
  - ACUTE HEPATIC FAILURE [None]
  - TUBULOINTERSTITIAL NEPHRITIS [None]
  - ASTHENIA [None]
  - CACHEXIA [None]
